FAERS Safety Report 10387375 (Version 7)
Quarter: 2019Q4

REPORT INFORMATION
  Report Type: Spontaneous
  Country: US (occurrence: US)
  Receive Date: 20140815
  Receipt Date: 20191108
  Transmission Date: 20200122
  Serious: Yes (Other)
  Sender: FDA-Public Use
  Company Number: US-PFIZER INC-2014228130

PATIENT
  Age: 80 Year
  Sex: Female
  Weight: 71.66 kg

DRUGS (19)
  1. ALBUTEROL SULFATE. [Concomitant]
     Active Substance: ALBUTEROL SULFATE
     Dosage: 1 DF, 2X/DAY (2.5MG/3 ML (0.083%) SOLUTION))
  2. ATORVASTATIN [Concomitant]
     Active Substance: ATORVASTATIN
     Dosage: 20 MG, 1X/DAY
  3. BENAZEPRIL [Concomitant]
     Active Substance: BENAZEPRIL HYDROCHLORIDE
     Dosage: 10 MG, 1X/DAY
  4. SPIRIVA [Concomitant]
     Active Substance: TIOTROPIUM BROMIDE MONOHYDRATE
     Dosage: 18 UG, 1X/DAY
  5. OMEPRAZOLE. [Concomitant]
     Active Substance: OMEPRAZOLE
     Dosage: 20 MG, 1X/DAY
  6. VITAMIN D3 [Concomitant]
     Active Substance: CHOLECALCIFEROL
     Dosage: 5000 IU, 1X/DAY
  7. ALPRAZOLAM. [Concomitant]
     Active Substance: ALPRAZOLAM
     Dosage: 0.25 MG, AS NEEDED  (1 TABLET TWICE DAILY OR AS NEEDED)
  8. CARVEDILOL. [Concomitant]
     Active Substance: CARVEDILOL
     Dosage: 3.125 MG, 2X/DAY
  9. TEMAZEPAM. [Concomitant]
     Active Substance: TEMAZEPAM
     Dosage: 30 MG, 1X/DAY (1 (ONE) CAPSULE AT BEDTIME)
  10. AZOPT [Concomitant]
     Active Substance: BRINZOLAMIDE
     Dosage: 2 GTT, 2X/DAY (2 DROP TWICE DAILY/ 1 DROP IN EACH EYE BID)
     Route: 047
  11. FUROSEMIDE. [Concomitant]
     Active Substance: FUROSEMIDE
     Dosage: 20 MG, AS NEEDED (1 TABLET ONCE DAILY OR AS NEEDED)
  12. LOTRISONE [Concomitant]
     Active Substance: BETAMETHASONE DIPROPIONATE\CLOTRIMAZOLE
     Dosage: UNK, 2X/DAY (1 %-0.05 % TOPICAL CREAM, 1 APPLICATION TWICE DAILY, 45GRAMS)
     Route: 061
  13. ASPIRIN 81 [Concomitant]
     Active Substance: ASPIRIN
     Dosage: 81 MG, 1X/DAY
  14. PROAIR HFA [Concomitant]
     Active Substance: ALBUTEROL SULFATE
     Dosage: 90 UG, AS NEEDED (1 INHALER THREE TIMES DAILY OR AS NEEDED)
     Route: 055
  15. LATANOPROST. [Concomitant]
     Active Substance: LATANOPROST
     Dosage: 2 GTT, 1X/DAY (1 DROP IN EACH EYE AT NIGHTS)
     Route: 047
  16. NATEGLINIDE. [Concomitant]
     Active Substance: NATEGLINIDE
     Dosage: 60 MG, 2X/DAY
  17. LYRICA [Suspect]
     Active Substance: PREGABALIN
     Indication: DIABETIC NEUROPATHY
     Dosage: 150 MG, 2X/DAY
  18. VOLTAREN [Concomitant]
     Active Substance: DICLOFENAC SODIUM
     Dosage: 1 G, AS NEEDED (1 GRAM TWICE DAILY OR AS NEEDED)
  19. FOLIC ACID. [Concomitant]
     Active Substance: FOLIC ACID
     Dosage: 1 MG, 1X/DAY

REACTIONS (4)
  - Blindness [Unknown]
  - Asthma [Recovered/Resolved]
  - Cataract [Unknown]
  - Disease recurrence [Recovered/Resolved]
